FAERS Safety Report 13608942 (Version 2)
Quarter: 2017Q4

REPORT INFORMATION
  Report Type: Report from Study
  Country: US (occurrence: US)
  Receive Date: 20170602
  Receipt Date: 20171129
  Transmission Date: 20180320
  Serious: Yes (Death, Other)
  Sender: FDA-Public Use
  Company Number: US-CELGENEUS-USA-2016024739

PATIENT

DRUGS (4)
  1. RUXOLITINIB [Suspect]
     Active Substance: RUXOLITINIB
     Indication: MYELODYSPLASTIC SYNDROME
     Dosage: 5-25 MG
     Route: 048
  2. RUXOLITINIB [Suspect]
     Active Substance: RUXOLITINIB
     Indication: MYELOPROLIFERATIVE NEOPLASM
  3. VIDAZA [Suspect]
     Active Substance: AZACITIDINE
     Indication: MYELOPROLIFERATIVE NEOPLASM
  4. VIDAZA [Suspect]
     Active Substance: AZACITIDINE
     Indication: MYELODYSPLASTIC SYNDROME
     Dosage: 25-75 MG/M2
     Route: 041

REACTIONS (39)
  - Sepsis [Fatal]
  - Bone marrow failure [Unknown]
  - Nausea [Unknown]
  - Constipation [Unknown]
  - Diarrhoea [Unknown]
  - Herpes zoster [Unknown]
  - Cardiac arrest [Fatal]
  - Graft versus host disease [Unknown]
  - Chest pain [Unknown]
  - Urinary tract infection [Unknown]
  - Leukocytosis [Unknown]
  - Vomiting [Unknown]
  - Insomnia [Unknown]
  - Pneumonia [Fatal]
  - Pericarditis constrictive [Unknown]
  - Thrombocytopenia [Unknown]
  - Neutropenia [Unknown]
  - Fatigue [Unknown]
  - Hyperbilirubinaemia [Unknown]
  - Actinic keratosis [Unknown]
  - Abdominal pain [Unknown]
  - Neoplasm [Unknown]
  - Cytopenia [Unknown]
  - Therapy non-responder [Unknown]
  - Myalgia [Unknown]
  - Anal cancer [Unknown]
  - Periorbital oedema [Unknown]
  - Acute myeloid leukaemia [Fatal]
  - Oedema peripheral [Unknown]
  - Soft tissue infection [Unknown]
  - Anaemia [Unknown]
  - Cardiac failure [Unknown]
  - Dizziness [Unknown]
  - Contusion [Unknown]
  - Pneumothorax [Unknown]
  - Hyperuricaemia [Unknown]
  - Transaminases increased [Unknown]
  - Decreased appetite [Unknown]
  - Headache [Unknown]
